FAERS Safety Report 23494673 (Version 1)
Quarter: 2024Q1

REPORT INFORMATION
  Report Type: Spontaneous
  Country: US (occurrence: None)
  Receive Date: 20240206
  Receipt Date: 20240206
  Transmission Date: 20240410
  Serious: Yes (Hospitalization)
  Sender: FDA-Public Use
  Company Number: None

PATIENT
  Age: 66 Year
  Sex: Female

DRUGS (1)
  1. PREDNISONE [Suspect]
     Active Substance: PREDNISONE
     Indication: Polymyositis

REACTIONS (4)
  - Back pain [None]
  - Spinal fracture [None]
  - Tooth fracture [None]
  - Dental caries [None]

NARRATIVE: CASE EVENT DATE: 20221101
